FAERS Safety Report 26072407 (Version 2)
Quarter: 2025Q4

REPORT INFORMATION
  Report Type: Spontaneous
  Country: US (occurrence: US)
  Receive Date: 20251120
  Receipt Date: 20251121
  Transmission Date: 20260117
  Serious: No
  Sender: NOVO NORDISK
  Company Number: US-NOVOPROD-1322212

PATIENT
  Age: 72 Year
  Sex: Female

DRUGS (2)
  1. FIASP [Suspect]
     Active Substance: INSULIN ASPART
     Indication: Type 2 diabetes mellitus
     Dosage: 6-7 UNITS
     Route: 058
     Dates: start: 20240802
  2. TRESIBA [Suspect]
     Active Substance: INSULIN DEGLUDEC
     Indication: Type 2 diabetes mellitus
     Dosage: 10 IU, QD
     Route: 058
     Dates: start: 2015

REACTIONS (4)
  - Dizziness [Unknown]
  - Hypoglycaemia [Unknown]
  - Injection site bruising [Not Recovered/Not Resolved]
  - Tremor [Unknown]
